FAERS Safety Report 9469992 (Version 1)
Quarter: 2013Q3

REPORT INFORMATION
  Report Type: Spontaneous
  Country: AU (occurrence: AU)
  Receive Date: 20130822
  Receipt Date: 20130822
  Transmission Date: 20140515
  Serious: Yes (Life-Threatening)
  Sender: FDA-Public Use
  Company Number: AU-009507513-1308AUS007360

PATIENT
  Age: 47 Year
  Sex: Female
  Weight: 55.1 kg

DRUGS (5)
  1. LORATADINE [Suspect]
     Dosage: 10 MG, ONCE
     Route: 048
     Dates: start: 20130621
  2. DEXAMETHASONE [Suspect]
     Dosage: 8 MG, ONCE
     Route: 042
     Dates: start: 20130621
  3. RANITIDINE [Suspect]
     Dosage: 50 MG, ONCE
     Route: 042
     Dates: start: 20130621
  4. PACLITAXEL [Suspect]
     Dosage: 108 MG, ONCE
     Dates: start: 20130621
  5. ALOXI [Suspect]
     Dosage: 250 MICROGRAM, ONCE
     Dates: start: 20130621

REACTIONS (6)
  - Dyspnoea [Unknown]
  - Chest discomfort [Unknown]
  - Abdominal pain [Unknown]
  - Swollen tongue [Unknown]
  - Lip swelling [Unknown]
  - Rash [Unknown]
